FAERS Safety Report 4379567-8 (Version None)
Quarter: 2004Q2

REPORT INFORMATION
  Report Type: 
  Country: None (occurrence: None)
  Receive Date: 20040415
  Receipt Date: 20040105
  Transmission Date: 20050107
  Serious: No
  Sender: FDA-Public Use
  Company Number: 2004-01-0223

PATIENT
  Age: 84 Year
  Sex: Female
  Weight: 60.782 kg

DRUGS (9)
  1. CLARINEX [Suspect]
     Indication: HYPERSENSITIVITY
     Dosage: 5MG QD ORAL
     Route: 048
     Dates: start: 20031203, end: 20031203
  2. VITAMIN D [Concomitant]
  3. MULTIVITAMIN [Concomitant]
  4. VITAMIN E [Concomitant]
  5. CALCIUM [Concomitant]
  6. KLOR-CON [Concomitant]
  7. DIGITEK [Concomitant]
  8. FUROSEMIDE [Concomitant]
  9. ASPIRIN [Concomitant]

REACTIONS (4)
  - ASTHENIA [None]
  - DIZZINESS [None]
  - DYSPNOEA [None]
  - MALAISE [None]
